FAERS Safety Report 7427909-9 (Version None)
Quarter: 2011Q2

REPORT INFORMATION
  Report Type: 
  Country: None (occurrence: None)
  Receive Date: 20110412
  Receipt Date: 20110330
  Transmission Date: 20111010
  Serious: Yes (Other)
  Sender: FDA-Public Use
  Company Number: 2011EK000010

PATIENT

DRUGS (1)
  1. CARDENE [Suspect]
     Indication: PRODUCT USED FOR UNKNOWN INDICATION
     Dosage: ; UNK; IV
     Route: 042

REACTIONS (1)
  - LUNG DISORDER [None]
